FAERS Safety Report 4625947-2 (Version None)
Quarter: 2005Q1

REPORT INFORMATION
  Report Type: 
  Country: None (occurrence: None)
  Receive Date: 20050330
  Receipt Date: 20050314
  Transmission Date: 20050727
  Serious: Yes (Death, Other)
  Sender: FDA-Public Use
  Company Number: USA050392433

PATIENT
  Age: 78 Year
  Sex: Female

DRUGS (1)
  1. ALIMTA [Suspect]
     Indication: MESOTHELIOMA

REACTIONS (2)
  - ARTERIAL THROMBOSIS [None]
  - NECROSIS [None]
